FAERS Safety Report 13504930 (Version 2)
Quarter: 2017Q3

REPORT INFORMATION
  Report Type: Spontaneous
  Country: US (occurrence: US)
  Receive Date: 20170502
  Receipt Date: 20170712
  Transmission Date: 20171127
  Serious: No
  Sender: FDA-Public Use
  Company Number: US-009507513-1704USA009233

PATIENT
  Age: 26 Year
  Sex: Female
  Weight: 99.77 kg

DRUGS (2)
  1. NEXPLANON [Suspect]
     Active Substance: ETONOGESTREL
     Dosage: 1 DF, UNK
     Route: 059
     Dates: start: 20170516
  2. NEXPLANON [Suspect]
     Active Substance: ETONOGESTREL
     Indication: CONTRACEPTION
     Dosage: 1 DF, EVERY 3 YEARS
     Route: 059
     Dates: start: 20150420, end: 20170516

REACTIONS (5)
  - Emotional disorder [Unknown]
  - Vaginal haemorrhage [Recovering/Resolving]
  - Hot flush [Unknown]
  - Device kink [Recovered/Resolved]
  - Device breakage [Recovered/Resolved]

NARRATIVE: CASE EVENT DATE: 201702
